FAERS Safety Report 5123993-6 (Version None)
Quarter: 2006Q3

REPORT INFORMATION
  Report Type: 
  Country: None (occurrence: None)
  Receive Date: 20060811
  Receipt Date: 20060424
  Transmission Date: 20061208
  Serious: No
  Sender: FDA-Public Use
  Company Number: S06-USA-01634-01

PATIENT
  Sex: Female

DRUGS (3)
  1. NAMENDA [Suspect]
     Dosage: 5 MG BID PO
     Route: 048
     Dates: start: 20040701, end: 20050501
  2. NAMENDA [Suspect]
     Dosage: 15 MG QD PO
     Route: 048
     Dates: start: 20050601
  3. RAZADYNE [Concomitant]

REACTIONS (1)
  - POLLAKIURIA [None]
